FAERS Safety Report 10108217 (Version 5)
Quarter: 2014Q2

REPORT INFORMATION
  Report Type: Spontaneous
  Country: TR (occurrence: TR)
  Receive Date: 20140425
  Receipt Date: 20140619
  Transmission Date: 20141212
  Serious: No
  Sender: FDA-Public Use
  Company Number: TR-AMGEN INC.-TURSP2013086776

PATIENT
  Age: 11 Year
  Sex: Female

DRUGS (4)
  1. ENBREL [Suspect]
     Indication: JUVENILE IDIOPATHIC ARTHRITIS
     Dosage: 50 MG, 2X/WEEK
     Route: 058
     Dates: start: 20090731
  2. ENBREL [Suspect]
     Dosage: 50 MG, WEEKLY
     Route: 058
     Dates: start: 20131118
  3. ENBREL [Suspect]
     Dosage: 50 MG, 2X/WEEK
     Route: 058
  4. ENBREL [Suspect]
     Dosage: 25 MG, 2X/WEEK
     Route: 058

REACTIONS (5)
  - Joint swelling [Not Recovered/Not Resolved]
  - Drug ineffective [Recovered/Resolved]
  - Joint effusion [Recovered/Resolved]
  - Boredom [Not Recovered/Not Resolved]
  - Condition aggravated [Unknown]
